FAERS Safety Report 5578546-2 (Version None)
Quarter: 2007Q4

REPORT INFORMATION
  Report Type: 
  Country: None (occurrence: None)
  Receive Date: 20071227
  Receipt Date: 20071220
  Transmission Date: 20080405
  Serious: Yes (Death)
  Sender: FDA-Public Use
  Company Number: 2007EN000122

PATIENT
  Age: 10 Year
  Sex: Female

DRUGS (5)
  1. ADAGEN [Suspect]
     Indication: COMBINED IMMUNODEFICIENCY
     Dosage: 30 IU/KG; BIW; IM; 44 IU/KG; BIW; IM
     Route: 030
     Dates: end: 20071213
  2. ADAGEN [Suspect]
     Indication: COMBINED IMMUNODEFICIENCY
     Dosage: 30 IU/KG; BIW; IM; 44 IU/KG; BIW; IM
     Route: 030
     Dates: start: 19980210
  3. TRIMETOPRIM ^NAF^ [Concomitant]
  4. ACYCLOVIR [Concomitant]
  5. NISTATIN [Concomitant]

REACTIONS (4)
  - LOBAR PNEUMONIA [None]
  - LYMPHOCYTE COUNT DECREASED [None]
  - MEASLES [None]
  - RESPIRATORY FAILURE [None]
